FAERS Safety Report 9361520 (Version 1)
Quarter: 2013Q2

REPORT INFORMATION
  Report Type: Spontaneous
  Country: AU (occurrence: AU)
  Receive Date: 20130621
  Receipt Date: 20130621
  Transmission Date: 20140414
  Serious: Yes (Hospitalization)
  Sender: FDA-Public Use
  Company Number: AU-SANOFI-AVENTIS-2013SA038509

PATIENT
  Sex: Male

DRUGS (19)
  1. NICORANDIL [Suspect]
     Indication: ANGINA PECTORIS
     Dosage: DOSE: 20 MM TWICE DAILY
     Route: 065
     Dates: start: 2010
  2. FRUSEMIDE [Suspect]
     Indication: PRODUCT USED FOR UNKNOWN INDICATION
     Route: 065
  3. LANTUS [Suspect]
     Indication: PRODUCT USED FOR UNKNOWN INDICATION
     Route: 065
  4. NOVORAPID [Suspect]
     Indication: PRODUCT USED FOR UNKNOWN INDICATION
     Route: 065
  5. PRAZOSIN HYDROCHLORIDE [Suspect]
     Indication: PRODUCT USED FOR UNKNOWN INDICATION
     Route: 065
  6. INSPRA [Suspect]
     Indication: CARDIAC FAILURE
     Route: 065
     Dates: start: 20110227, end: 20130101
  7. HYDRALAZINE [Suspect]
     Indication: CARDIAC FAILURE
     Route: 065
     Dates: start: 2010
  8. QUINAPRIL HYDROCHLORIDE [Suspect]
     Indication: CARDIAC FAILURE
     Route: 065
     Dates: start: 2010
  9. CANDESARTAN [Suspect]
     Indication: PRODUCT USED FOR UNKNOWN INDICATION
     Route: 065
  10. METFORMIN [Suspect]
     Indication: PRODUCT USED FOR UNKNOWN INDICATION
     Route: 065
  11. ROSUVASTATIN [Suspect]
     Indication: PRODUCT USED FOR UNKNOWN INDICATION
     Route: 065
  12. GLICLAZIDE [Suspect]
     Indication: PRODUCT USED FOR UNKNOWN INDICATION
     Route: 065
  13. PERHEXILINE MALEATE [Suspect]
     Indication: PRODUCT USED FOR UNKNOWN INDICATION
     Route: 065
  14. SOTALOL HYDROCHLORIDE [Suspect]
     Indication: PRODUCT USED FOR UNKNOWN INDICATION
     Route: 065
  15. CARVEDILOL [Suspect]
     Indication: PRODUCT USED FOR UNKNOWN INDICATION
     Route: 065
  16. COPLAVIX [Concomitant]
  17. IVABRADINE HYDROCHLORIDE [Concomitant]
  18. DIGOXIN [Concomitant]
  19. EZETIMIBE [Concomitant]

REACTIONS (4)
  - Renal failure acute [Recovered/Resolved]
  - Hypotension [Recovered/Resolved]
  - Presyncope [Recovered/Resolved]
  - Unevaluable event [Recovered/Resolved]
